FAERS Safety Report 13770460 (Version 1)
Quarter: 2017Q3

REPORT INFORMATION
  Report Type: Spontaneous
  Country: US (occurrence: US)
  Receive Date: 20170719
  Receipt Date: 20170719
  Transmission Date: 20171127
  Serious: No
  Sender: FDA-Public Use
  Company Number: None

PATIENT
  Age: 17 Year
  Sex: Female

DRUGS (2)
  1. PHENYLEPHRINE [Suspect]
     Active Substance: PHENYLEPHRINE\PHENYLEPHRINE HYDROCHLORIDE
  2. CYCLOPENTOLATE. [Suspect]
     Active Substance: CYCLOPENTOLATE

REACTIONS (2)
  - Hypertension [None]
  - Tachycardia [None]

NARRATIVE: CASE EVENT DATE: 20170718
